FAERS Safety Report 7825150-9 (Version None)
Quarter: 2011Q4

REPORT INFORMATION
  Report Type: 
  Country: None (occurrence: None)
  Receive Date: 20111019
  Receipt Date: 20111010
  Transmission Date: 20120403
  Serious: Yes (Hospitalization, Other)
  Sender: FDA-Public Use
  Company Number: DE-JNJFOC-20101202909

PATIENT
  Sex: Female
  Weight: 29.9 kg

DRUGS (5)
  1. REMICADE [Suspect]
     Indication: CROHN'S DISEASE
     Dosage: 200-300 MG Q4W
     Route: 042
     Dates: start: 20090702
  2. REMICADE [Suspect]
     Route: 042
     Dates: start: 20101125
  3. OTHER THERAPEUTIC PRODUCT UNSPECIFIED [Suspect]
     Indication: PRODUCT USED FOR UNKNOWN INDICATION
  4. REMICADE [Suspect]
     Route: 042
     Dates: start: 20100812
  5. ACYCLOVIR [Suspect]
     Indication: PRODUCT USED FOR UNKNOWN INDICATION

REACTIONS (1)
  - HERPES ZOSTER [None]
